FAERS Safety Report 5029706-0 (Version None)
Quarter: 2006Q2

REPORT INFORMATION
  Report Type: 
  Country: None (occurrence: None)
  Receive Date: 20060620
  Receipt Date: 20060602
  Transmission Date: 20061013
  Serious: Yes (Hospitalization, Other)
  Sender: FDA-Public Use
  Company Number: BR-BRISTOL-MYERS SQUIBB COMPANY-13401682

PATIENT
  Age: 73 Year
  Sex: Female

DRUGS (4)
  1. TEQUIN [Suspect]
     Indication: LUNG INFECTION
     Route: 048
     Dates: start: 20060510, end: 20060513
  2. INSULIN [Concomitant]
  3. CARDIOL [Concomitant]
  4. CAPTOPRIL [Concomitant]

REACTIONS (15)
  - AGITATION [None]
  - AMNESIA [None]
  - ANOREXIA [None]
  - ASTHENIA [None]
  - CONFUSIONAL STATE [None]
  - DYSPNOEA [None]
  - FAECAL INCONTINENCE [None]
  - HALLUCINATION [None]
  - HYPOGLYCAEMIA [None]
  - INSOMNIA [None]
  - MOTOR DYSFUNCTION [None]
  - NAUSEA [None]
  - OEDEMA PERIPHERAL [None]
  - SKIN STRIAE [None]
  - VOMITING [None]
